FAERS Safety Report 6396640-3 (Version None)
Quarter: 2009Q4

REPORT INFORMATION
  Report Type: 
  Country: None (occurrence: None)
  Receive Date: 20091012
  Receipt Date: 20091001
  Transmission Date: 20100525
  Serious: No
  Sender: FDA-Public Use
  Company Number: GB-AMGEN-UK366465

PATIENT
  Age: 80 Year
  Sex: Female

DRUGS (4)
  1. NEULASTA [Suspect]
     Indication: CHEMOTHERAPY
     Route: 065
  2. FLUDARABINE [Suspect]
     Route: 065
  3. CYCLOPHOSPHAMIDE [Suspect]
     Route: 065
  4. RITUXIMAB [Suspect]
     Route: 065

REACTIONS (1)
  - PANCYTOPENIA [None]
